FAERS Safety Report 5039213-7 (Version None)
Quarter: 2006Q2

REPORT INFORMATION
  Report Type: 
  Country: None (occurrence: None)
  Receive Date: 20060629
  Receipt Date: 20060615
  Transmission Date: 20061013
  Serious: Yes (Hospitalization)
  Sender: FDA-Public Use
  Company Number: HQWYE233815JUN06

PATIENT
  Sex: Male

DRUGS (2)
  1. ENBREL [Suspect]
     Indication: RHEUMATOID ARTHRITIS
     Route: 058
     Dates: start: 20051129, end: 20060530
  2. BUCILLAMINE [Concomitant]
     Dosage: UNKNOWN
     Route: 048

REACTIONS (3)
  - C-REACTIVE PROTEIN INCREASED [None]
  - PYREXIA [None]
  - WHITE BLOOD CELL COUNT INCREASED [None]
